FAERS Safety Report 9127981 (Version 1)
Quarter: 2013Q1

REPORT INFORMATION
  Report Type: Spontaneous
  Country: US (occurrence: US)
  Receive Date: 20130228
  Receipt Date: 20130228
  Transmission Date: 20140127
  Serious: Yes (Other)
  Sender: FDA-Public Use
  Company Number: 2013SP002602

PATIENT
  Age: 4 Month
  Sex: Male

DRUGS (15)
  1. FOSPHENYTOIN SODIUM [Suspect]
     Indication: STATUS EPILEPTICUS
     Route: 042
  2. TOPIRAMATE [Suspect]
     Indication: PRODUCT USED FOR UNKNOWN INDICATION
  3. TOPIRAMATE [Suspect]
     Indication: PRODUCT USED FOR UNKNOWN INDICATION
  4. LEVETIRACETAM [Suspect]
     Indication: CONVULSION
     Route: 042
  5. LEVETIRACETAM [Suspect]
     Indication: CONVULSION
  6. LEVETIRACETAM [Suspect]
     Indication: CONVULSION
  7. LEVETIRACETAM [Suspect]
     Indication: CONVULSION
  8. MIDAZOLAM [Suspect]
     Indication: STATUS EPILEPTICUS
     Route: 042
  9. MIDAZOLAM [Suspect]
     Indication: STATUS EPILEPTICUS
  10. PHENOBARBITAL [Suspect]
     Indication: CONVULSION
  11. PHENOBARBITAL [Suspect]
     Indication: CONVULSION
  12. FOLINIC ACID [Suspect]
     Indication: CONVULSION
  13. PYRIDOXAL [Suspect]
     Indication: CONVULSION
  14. DIAZEPAM [Concomitant]
     Indication: PRODUCT USED FOR UNKNOWN INDICATION
     Route: 054
  15. LORAZEPAM [Concomitant]
     Indication: PRODUCT USED FOR UNKNOWN INDICATION
     Route: 042

REACTIONS (5)
  - Drug ineffective [Unknown]
  - Status epilepticus [None]
  - Sinus bradycardia [None]
  - Tachycardia [None]
  - Hypertension [None]
